FAERS Safety Report 24040031 (Version 2)
Quarter: 2024Q4

REPORT INFORMATION
  Report Type: Spontaneous
  Country: JP (occurrence: JP)
  Receive Date: 20240702
  Receipt Date: 20241203
  Transmission Date: 20250115
  Serious: Yes (Other)
  Sender: AMGEN
  Company Number: JP-AMGEN-JPNSP2024128796

PATIENT
  Age: 8 Year
  Sex: Male
  Weight: 28.2 kg

DRUGS (2)
  1. BLINCYTO [Suspect]
     Active Substance: BLINATUMOMAB
     Indication: B-cell type acute leukaemia
     Dosage: 15 MICROGRAM, QD, 24 HOURS X 28 DAYS
     Route: 040
     Dates: start: 201911, end: 202001
  2. BLINCYTO [Suspect]
     Active Substance: BLINATUMOMAB
     Dosage: 15 MICROGRAM, QD, 24 HOURS X 28 DAYS
     Route: 040
     Dates: start: 202203, end: 202204

REACTIONS (1)
  - Acute lymphocytic leukaemia recurrent [Recovered/Resolved]

NARRATIVE: CASE EVENT DATE: 20210601
